FAERS Safety Report 26124748 (Version 1)
Quarter: 2025Q4

REPORT INFORMATION
  Report Type: Spontaneous
  Country: JP (occurrence: JP)
  Receive Date: 20251205
  Receipt Date: 20251205
  Transmission Date: 20260118
  Serious: Yes (Other)
  Sender: TEVA
  Company Number: JP-MMM-Otsuka-IPELCG6Z

PATIENT
  Sex: Female

DRUGS (2)
  1. AJOVY [Suspect]
     Active Substance: FREMANEZUMAB-VFRM
     Indication: Migraine
     Dosage: UNK, AUTOINJECTOR
     Route: 058
  2. OXITRIPTAN [Suspect]
     Active Substance: OXITRIPTAN
     Indication: Migraine
     Route: 048

REACTIONS (1)
  - Hypoaesthesia [Recovered/Resolved]
